FAERS Safety Report 14583566 (Version 1)
Quarter: 2018Q1

REPORT INFORMATION
  Report Type: Spontaneous
  Country: GB (occurrence: GB)
  Receive Date: 20180228
  Receipt Date: 20180228
  Transmission Date: 20180509
  Serious: Yes (Hospitalization)
  Sender: FDA-Public Use
  Company Number: GB-OTSUKA-DJ20104804

PATIENT

DRUGS (3)
  1. CITALOPRAM [Concomitant]
     Active Substance: CITALOPRAM HYDROBROMIDE
     Route: 065
  2. ABILIFY [Suspect]
     Active Substance: ARIPIPRAZOLE
     Indication: BIPOLAR DISORDER
     Route: 048
  3. METHADONE [Concomitant]
     Active Substance: METHADONE HYDROCHLORIDE
     Route: 065

REACTIONS (3)
  - Basal ganglia haemorrhage [Recovering/Resolving]
  - Cerebral haemorrhage [Recovering/Resolving]
  - Hydrocephalus [Recovering/Resolving]

NARRATIVE: CASE EVENT DATE: 201007
